FAERS Safety Report 10626350 (Version 2)
Quarter: 2014Q4

REPORT INFORMATION
  Report Type: Report from Study
  Country: US (occurrence: US)
  Receive Date: 20141204
  Receipt Date: 20141210
  Transmission Date: 20150529
  Serious: Yes (Other)
  Sender: FDA-Public Use
  Company Number: US-ABBVIE-14K-163-1314350-00

PATIENT
  Age: 55 Year
  Sex: Female

DRUGS (1)
  1. HUMIRA [Suspect]
     Active Substance: ADALIMUMAB
     Indication: PSORIATIC ARTHROPATHY
     Route: 058
     Dates: start: 20130809, end: 201409

REACTIONS (5)
  - Blindness unilateral [Not Recovered/Not Resolved]
  - Corneal infection [Unknown]
  - Paronychia [Recovering/Resolving]
  - Clostridium difficile infection [Unknown]
  - Corneal abrasion [Unknown]

NARRATIVE: CASE EVENT DATE: 201409
